FAERS Safety Report 7230246-9 (Version None)
Quarter: 2011Q1

REPORT INFORMATION
  Report Type: 
  Country: None (occurrence: None)
  Receive Date: 20110118
  Receipt Date: 20110114
  Transmission Date: 20110831
  Serious: No
  Sender: FDA-Public Use
  Company Number: US-PFIZER INC-2011010172

PATIENT
  Sex: Female

DRUGS (1)
  1. VIBRAMYCIN [Suspect]
     Indication: LYME DISEASE
     Dosage: FOUR TEASPOONFUL ONCE A DAY
     Route: 048
     Dates: start: 20110113, end: 20110114

REACTIONS (3)
  - TREMOR [None]
  - VOMITING [None]
  - NAUSEA [None]
